FAERS Safety Report 21669260 (Version 1)
Quarter: 2022Q4

REPORT INFORMATION
  Report Type: Report from Study
  Country: US (occurrence: US)
  Receive Date: 20221201
  Receipt Date: 20221201
  Transmission Date: 20230113
  Serious: No
  Sender: FDA-Public Use
  Company Number: US-ABBVIE-4182104

PATIENT
  Sex: Female

DRUGS (5)
  1. HUMIRA [Suspect]
     Active Substance: ADALIMUMAB
     Indication: Hidradenitis
     Dosage: FORM STRENGTH: 40 MILLIGRAM?CITRATE FREE
     Route: 058
  2. HUMIRA [Suspect]
     Active Substance: ADALIMUMAB
     Dosage: FORM STRENGTH: 40 MILLIGRAM?CITRATE FREE?DOSE INCREASED
  3. Moderna [Concomitant]
     Indication: COVID-19 immunisation
     Dosage: 1 IN ONCE?BOOSTER DOSE
     Route: 030
     Dates: start: 20220115, end: 20220115
  4. Pfizer/BioNTech [Concomitant]
     Indication: COVID-19 immunisation
     Dosage: FIRST DOSE?1 IN ONCE
     Route: 030
     Dates: start: 20210414, end: 20210414
  5. Pfizer/BioNTech [Concomitant]
     Indication: COVID-19 immunisation
     Dosage: SECOND DOSE?1 IN ONCE
     Route: 030
     Dates: start: 20210505, end: 20210505

REACTIONS (2)
  - Pain [Not Recovered/Not Resolved]
  - Hidradenitis [Not Recovered/Not Resolved]
